FAERS Safety Report 7646442-2 (Version None)
Quarter: 2011Q3

REPORT INFORMATION
  Report Type: 
  Country: None (occurrence: None)
  Receive Date: 20110801
  Receipt Date: 20110719
  Transmission Date: 20111222
  Serious: Yes (Hospitalization)
  Sender: FDA-Public Use
  Company Number: IT-JNJFOC-20110708973

PATIENT
  Age: 63 Year
  Sex: Male

DRUGS (1)
  1. LEVOFLOXACIN [Suspect]
     Indication: PYREXIA
     Route: 048
     Dates: start: 20100807, end: 20100815

REACTIONS (4)
  - MIXED LIVER INJURY [None]
  - HYPERTRANSAMINASAEMIA [None]
  - HEPATITIS [None]
  - CHOLESTASIS [None]
